FAERS Safety Report 11720521 (Version 1)
Quarter: 2015Q4

REPORT INFORMATION
  Report Type: Spontaneous
  Country: FR (occurrence: FR)
  Receive Date: 20151110
  Receipt Date: 20151110
  Transmission Date: 20160304
  Serious: Yes (Hospitalization)
  Sender: FDA-Public Use
  Company Number: FR-B. BRAUN MEDICAL INC.-1044020

PATIENT
  Age: 60 Year
  Sex: Male

DRUGS (16)
  1. METRONIDAZOLE. [Suspect]
     Active Substance: METRONIDAZOLE
     Route: 042
     Dates: start: 20150916, end: 20150922
  2. CLOBETASOL [Concomitant]
     Active Substance: CLOBETASOL
  3. CEFTRIAXONE. [Concomitant]
     Active Substance: CEFTRIAXONE
     Route: 042
     Dates: start: 20150916, end: 20150922
  4. FUROSEMIDE. [Concomitant]
     Active Substance: FUROSEMIDE
  5. ESOMEPRAZOLE [Concomitant]
     Active Substance: ESOMEPRAZOLE
  6. VALPROIC ACID. [Concomitant]
     Active Substance: VALPROIC ACID
  7. BACLOFENE [Concomitant]
     Active Substance: BACLOFEN
  8. TRAMADOL. [Concomitant]
     Active Substance: TRAMADOL
  9. ENOXAPARIN [Concomitant]
     Active Substance: ENOXAPARIN
  10. CETIRIZINE [Concomitant]
     Active Substance: CETIRIZINE HYDROCHLORIDE
  11. ALFUZOSINE [Concomitant]
     Active Substance: ALFUZOSIN HYDROCHLORIDE
  12. BETAMETHASONE. [Concomitant]
     Active Substance: BETAMETHASONE
  13. PHENOBARBITAL. [Concomitant]
     Active Substance: PHENOBARBITAL
  14. PARACETAMOL [Concomitant]
     Active Substance: ACETAMINOPHEN
  15. ESCITALOPRAM [Concomitant]
     Active Substance: ESCITALOPRAM OXALATE
  16. POTASSIUM CHLORIDE. [Concomitant]
     Active Substance: POTASSIUM CHLORIDE

REACTIONS (2)
  - Agranulocytosis [None]
  - Neutropenia [None]
